FAERS Safety Report 9614093 (Version 1)
Quarter: 2013Q4

REPORT INFORMATION
  Report Type: Spontaneous
  Country: US (occurrence: US)
  Receive Date: 20131011
  Receipt Date: 20131011
  Transmission Date: 20140711
  Serious: No
  Sender: FDA-Public Use
  Company Number: US-009507513-1310USA003867

PATIENT
  Age: 62 Year
  Sex: Male

DRUGS (12)
  1. INTEGRILIN [Suspect]
     Indication: CARDIAC DISORDER
     Dosage: BOLUS INFUSION
     Route: 042
     Dates: start: 20131007
  2. NITROGLYCERIN [Concomitant]
     Dosage: UNK
  3. TYLENOL [Concomitant]
     Dosage: UNK
  4. ASPIRIN [Concomitant]
     Dosage: UNK
  5. BUDESONIDE [Concomitant]
     Dosage: UNK
  6. FLUTICASONE [Concomitant]
     Dosage: UNK
  7. LEVOTHYROXINE SODIUM [Concomitant]
     Dosage: UNK
  8. METOPROLOL [Concomitant]
     Dosage: UNK
  9. OMEGA-3 MARINE TRIGLYCERIDES [Concomitant]
     Dosage: FISH OIL
  10. UBIDECARENONE [Concomitant]
     Dosage: COENZYME Q10
  11. NIASPAN [Concomitant]
     Dosage: UNK
  12. VALSARTAN [Concomitant]

REACTIONS (1)
  - Dysgeusia [Recovered/Resolved]
